FAERS Safety Report 24737951 (Version 1)
Quarter: 2024Q4

REPORT INFORMATION
  Report Type: Spontaneous
  Country: US (occurrence: US)
  Receive Date: 20241216
  Receipt Date: 20241216
  Transmission Date: 20250114
  Serious: Yes (Hospitalization, Other)
  Sender: FRESENIUS MEDICAL CARE
  Company Number: US-FMCRTG-FMC-2411-001513

PATIENT
  Age: 61 Year
  Sex: Female
  Weight: 123 kg

DRUGS (3)
  1. DELFLEX WITH DEXTROSE 1.5% LOW MAGNESIUM LOW CALCIUM [Suspect]
     Active Substance: CALCIUM CHLORIDE\DEXTROSE\MAGNESIUM CHLORIDE\SODIUM CHLORIDE\SODIUM LACTATE
     Indication: End stage renal disease
     Dosage: 3000 ML FOR 4 CYCLES WITH A LAST FILL OF ICODEXTRIN AT 2500 ML
     Route: 033
  2. DELFLEX WITH DEXTROSE 2.5% LOW MAGNESIUM LOW CALCIUM [Suspect]
     Active Substance: CALCIUM CHLORIDE\DEXTROSE\MAGNESIUM CHLORIDE\SODIUM CHLORIDE\SODIUM LACTATE
     Indication: End stage renal disease
     Dosage: 3000 ML FOR 4 CYCLES WITH A LAST FILL OF ICODEXTRIN AT 2500 ML
     Route: 033
  3. ICODEXTRIN [Suspect]
     Active Substance: ICODEXTRIN
     Indication: End stage renal disease

REACTIONS (2)
  - Peritonitis [Recovering/Resolving]
  - Peritonitis bacterial [Recovering/Resolving]

NARRATIVE: CASE EVENT DATE: 20241016
